FAERS Safety Report 12213812 (Version 1)
Quarter: 2016Q1

REPORT INFORMATION
  Report Type: Spontaneous
  Country: US (occurrence: None)
  Receive Date: 20160325
  Receipt Date: 20160325
  Transmission Date: 20160526
  Serious: Yes (Hospitalization)
  Sender: FDA-Public Use
  Company Number: None

PATIENT
  Age: 62 Year
  Sex: Male
  Weight: 137.5 kg

DRUGS (1)
  1. DOFETILIDE [Suspect]
     Active Substance: DOFETILIDE
     Indication: ATRIAL FIBRILLATION
     Route: 048
     Dates: start: 20151102, end: 20151103

REACTIONS (5)
  - Sedation [None]
  - Electrocardiogram QT prolonged [None]
  - Syncope [None]
  - Ventricular tachycardia [None]
  - Palpitations [None]

NARRATIVE: CASE EVENT DATE: 20151103
